FAERS Safety Report 5904381-9 (Version None)
Quarter: 2008Q4

REPORT INFORMATION
  Report Type: 
  Country: None (occurrence: None)
  Receive Date: 20081001
  Receipt Date: 20080926
  Transmission Date: 20090506
  Serious: Yes (Death, Hospitalization)
  Sender: FDA-Public Use
  Company Number: PHHY2007MX00546

PATIENT
  Sex: Female

DRUGS (4)
  1. DIOVAN [Suspect]
     Indication: HYPERTENSION
     Dosage: 80 MG, QD
     Route: 048
  2. DIOVAN [Suspect]
     Dosage: 4.5 TABLETS/DAY
     Route: 048
  3. DIOVAN HCT [Concomitant]
     Dosage: 160 MG OF VALS/ 25 MG OF HCT / DAY
     Route: 048
  4. DIOVAN HCT [Concomitant]
     Dosage: 3 TABLETS / DAY
     Route: 048

REACTIONS (4)
  - LUNG OPERATION [None]
  - PROCEDURAL COMPLICATION [None]
  - RESPIRATORY FAILURE [None]
  - SURGERY [None]
